FAERS Safety Report 7310193-4 (Version None)
Quarter: 2011Q1

REPORT INFORMATION
  Report Type: 
  Country: None (occurrence: None)
  Receive Date: 20110224
  Receipt Date: 20110217
  Transmission Date: 20110831
  Serious: Yes (Other)
  Sender: FDA-Public Use
  Company Number: US-PFIZER INC-2011036388

PATIENT
  Sex: Male
  Weight: 88.435 kg

DRUGS (6)
  1. BUPRENORPHINE HCL AND NALOXONE HCL [Concomitant]
     Indication: SURGERY
     Dosage: UNK
  2. VENLAFAXINE HCL [Suspect]
     Indication: STRESS
  3. VENLAFAXINE HCL [Suspect]
     Indication: DEPRESSION
     Dosage: 75 MG, 3X/DAY
     Route: 048
     Dates: start: 20110101, end: 20110101
  4. ALLEGRA D 24 HOUR [Concomitant]
     Indication: SINUS DISORDER
     Dosage: UNK
  5. EFFEXOR XR [Concomitant]
     Indication: DEPRESSION
     Dosage: 75 MG, 3X/DAY
     Route: 048
     Dates: start: 20080801
  6. EFFEXOR XR [Concomitant]
     Indication: STRESS

REACTIONS (5)
  - FEELING ABNORMAL [None]
  - ANGER [None]
  - MEMORY IMPAIRMENT [None]
  - HALLUCINATIONS, MIXED [None]
  - MIDDLE INSOMNIA [None]
